FAERS Safety Report 7970972-7 (Version None)
Quarter: 2011Q4

REPORT INFORMATION
  Report Type: 
  Country: None (occurrence: None)
  Receive Date: 20111212
  Receipt Date: 20111202
  Transmission Date: 20120403
  Serious: Yes (Hospitalization)
  Sender: FDA-Public Use
  Company Number: BR-BRISTOL-MYERS SQUIBB COMPANY-16274219

PATIENT
  Age: 48 Year
  Sex: Male
  Weight: 81 kg

DRUGS (7)
  1. DIGOXIN [Concomitant]
  2. LOSARTAN POTASSIUM [Concomitant]
  3. HYGROTON [Concomitant]
  4. ATORVASTATIN [Concomitant]
  5. METFORMIN HYDROCHLORIDE [Concomitant]
  6. ONGLYZA [Suspect]
     Indication: TYPE 2 DIABETES MELLITUS
     Dosage: 1 TAB,ABOUT 10 MONTHS
     Route: 048
     Dates: start: 20110101
  7. CARVEDILOL [Concomitant]

REACTIONS (2)
  - HEPATOMEGALY [None]
  - CARDIOMEGALY [None]
